FAERS Safety Report 9633210 (Version 1)
Quarter: 2013Q4

REPORT INFORMATION
  Report Type: Spontaneous
  Country: US (occurrence: None)
  Receive Date: 20131018
  Receipt Date: 20131018
  Transmission Date: 20140711
  Serious: Yes (Other)
  Sender: FDA-Public Use
  Company Number: None

PATIENT
  Age: 71 Year
  Sex: Female

DRUGS (1)
  1. FORTEO [Suspect]
     Indication: OSTEOPOROSIS
     Route: 050
     Dates: start: 20130730

REACTIONS (2)
  - Abdominal distension [None]
  - Injection site pain [None]
